FAERS Safety Report 4582247-7 (Version None)
Quarter: 2005Q1

REPORT INFORMATION
  Report Type: 
  Country: None (occurrence: None)
  Receive Date: 20050120
  Receipt Date: 20041015
  Transmission Date: 20050727
  Serious: Yes (Hospitalization)
  Sender: FDA-Public Use
  Company Number: 2004RL000119

PATIENT
  Age: 82 Year
  Sex: Male

DRUGS (3)
  1. PROPAFENONE HCL [Suspect]
     Indication: ATRIAL FIBRILLATION
     Dosage: 140 MCG;X1;IV
     Route: 042
     Dates: start: 20041011, end: 20041011
  2. ATENOLOL [Suspect]
     Indication: ATRIAL FLUTTER
     Dosage: 50 MG;QD;PO
     Route: 048
     Dates: start: 19990101, end: 20041011
  3. FLECAINIDE ACETATE [Suspect]
     Indication: ATRIAL FLUTTER
     Dosage: 150 MG;/QD;PO
     Route: 048
     Dates: start: 19990101, end: 20041011

REACTIONS (1)
  - VENTRICULAR TACHYCARDIA [None]
